FAERS Safety Report 22808763 (Version 2)
Quarter: 2025Q1

REPORT INFORMATION
  Report Type: Spontaneous
  Country: PL (occurrence: PL)
  Receive Date: 20230810
  Receipt Date: 20250131
  Transmission Date: 20250408
  Serious: Yes (Life-Threatening, Other)
  Sender: ROCHE
  Company Number: PL-CELLTRION HEALTHCARE HUNGARY KFT-2023PL013741

PATIENT
  Age: 19 Year
  Sex: Male

DRUGS (14)
  1. RITUXIMAB [Suspect]
     Active Substance: RITUXIMAB
     Indication: High grade B-cell lymphoma Burkitt-like lymphoma
     Dosage: EVERY 3 WEEKS (ADDITIONAL INFORMATION ON DRUG: R-HYPER--CVAD)(CUMULATIVE DOSE: 4 CYCLES)
     Route: 040
     Dates: start: 2020
  2. RITUXIMAB [Suspect]
     Active Substance: RITUXIMAB
     Dosage: EVERY 3 WEEKS (CUMULATIVE DOSE: 2 CYCLES,Q3W; ADDITIONAL INFORMATION ON DRUG: R-CHOP)
     Route: 040
  3. CYCLOPHOSPHAMIDE [Suspect]
     Active Substance: CYCLOPHOSPHAMIDE
     Indication: High grade B-cell lymphoma Burkitt-like lymphoma
     Dosage: EVERY 3 WEEKS (ADDITIONAL INFORMATION ON DRUG: R-HYPER--CVAD)(CUMULATIVE DOSE: 4 CYCLES)/CUMULATIVE
     Route: 065
     Dates: start: 2020
  4. METHOTREXATE [Suspect]
     Active Substance: METHOTREXATE
     Indication: High grade B-cell lymphoma Burkitt-like lymphoma
     Route: 065
     Dates: start: 2020
  5. METHOTREXATE [Suspect]
     Active Substance: METHOTREXATE
     Dosage: EVERY 3 WEEKS (ADDITIONAL INFORMATION ON DRUG: R-HYPER--CVAD)(CUMULATIVE DOSE: 4 CYCLES) ~IMMUNOCHEM
     Route: 065
     Dates: start: 2020
  6. PREDNISOLONE [Suspect]
     Active Substance: PREDNISOLONE
     Indication: Product used for unknown indication
     Dosage: UNK, Q3W/ R-CHOP
     Route: 065
     Dates: start: 2020
  7. CYTARABINE [Suspect]
     Active Substance: CYTARABINE
     Indication: High grade B-cell lymphoma Burkitt-like lymphoma
     Dosage: EVERY 3 WEEKS (ADDITIONAL INFORMATION ON DRUG: R-HYPER--CVAD)(CCUMULATIVE DOSE: 4 CYCLES)/UNK, CYCLI
     Route: 065
     Dates: start: 2020
  8. CYTARABINE [Suspect]
     Active Substance: CYTARABINE
     Route: 065
  9. VINCRISTINE [Suspect]
     Active Substance: VINCRISTINE
     Indication: High grade B-cell lymphoma Burkitt-like lymphoma
     Dosage: EVERY 3 WEEKS (ADDITIONAL INFORMATION ON DRUG: R-HYPER--CVAD)(CUMULATIVE DOSE: 4 CYCLES)/UNK, Q3W, C
     Route: 065
     Dates: start: 2020
  10. DEXAMETHASONE [Suspect]
     Active Substance: DEXAMETHASONE
     Indication: High grade B-cell lymphoma Burkitt-like lymphoma
     Dosage: EVERY 3 WEEKS/UNK, Q3W/IMMUNOCHEMOTHERAPY (R-HYPER-CVAD)
     Route: 065
     Dates: start: 2020
  11. DEXAMETHASONE [Suspect]
     Active Substance: DEXAMETHASONE
     Dosage: UNK, CYCLIC, CUMULATIVE DOSE: 4 CYCLES, ~IMMUNOCHEMOTHERAPY (R-HYPER-CVAD), Q3W
     Route: 065
  12. DEXAMETHASONE [Suspect]
     Active Substance: DEXAMETHASONE
     Route: 065
  13. DOXORUBICIN [Suspect]
     Active Substance: DOXORUBICIN
     Indication: High grade B-cell lymphoma Burkitt-like lymphoma
     Dosage: EVERY 3 WEEKS (ADDITIONAL INFORMATION ON DRUG: R-HYPER--CVAD)(CUMULATIVE DOSE: 4 CYCLES)/CUMULATIVE
     Route: 065
     Dates: start: 2020
  14. DOXORUBICIN [Suspect]
     Active Substance: DOXORUBICIN
     Dosage: EVERY 3 WEEKS (CUMULATIVE DOSE: 4 CYCLES, IIMMUNOCHEMOTHERAPY (R-HYPER-CVAD); ADDITIONAL INFORMATION
     Route: 065

REACTIONS (3)
  - Neutropenia [Unknown]
  - Off label use [Unknown]
  - Myelosuppression [Unknown]
